FAERS Safety Report 19955257 (Version 1)
Quarter: 2021Q4

REPORT INFORMATION
  Report Type: Spontaneous
  Country: FR (occurrence: FR)
  Receive Date: 20211014
  Receipt Date: 20211014
  Transmission Date: 20220303
  Serious: Yes (Other)
  Sender: FDA-Public Use
  Company Number: None

PATIENT
  Age: 27 Year
  Sex: Female

DRUGS (2)
  1. XANAX [Suspect]
     Active Substance: ALPRAZOLAM
     Dosage: PRESCRIPTION: AS NEEDED
     Route: 048
     Dates: start: 202105
  2. MEPHEDRONE [Suspect]
     Active Substance: MEPHEDRONE
     Dosage: UNK
     Dates: start: 202105

REACTIONS (3)
  - Chemical submission [Recovered/Resolved]
  - Amnesia [Recovered/Resolved]
  - Drug abuse [Unknown]

NARRATIVE: CASE EVENT DATE: 20210515
